FAERS Safety Report 9966963 (Version 1)
Quarter: 2014Q1

REPORT INFORMATION
  Report Type: Spontaneous
  Country: IT (occurrence: DE)
  Receive Date: 20140305
  Receipt Date: 20140305
  Transmission Date: 20141002
  Serious: Yes (Hospitalization)
  Sender: FDA-Public Use
  Company Number: DE-FRI-1000054957

PATIENT
  Age: 22 Year
  Sex: Female

DRUGS (2)
  1. FOSFOMYCIN [Suspect]
     Indication: CYSTITIS
     Dosage: 3000 MG
     Route: 048
     Dates: start: 20140210, end: 20140210
  2. CONTRACEPTIVES [Concomitant]
     Indication: CONTRACEPTION

REACTIONS (3)
  - Partial seizures [Recovered/Resolved]
  - Tachycardia [Recovered/Resolved]
  - Headache [Recovered/Resolved]
